FAERS Safety Report 7285224-0 (Version None)
Quarter: 2011Q1

REPORT INFORMATION
  Report Type: 
  Country: None (occurrence: None)
  Receive Date: 20110210
  Receipt Date: 20110204
  Transmission Date: 20110831
  Serious: Yes (Death, Hospitalization)
  Sender: FDA-Public Use
  Company Number: US-EISAI INC-E7389-01070-CLI-US

PATIENT
  Sex: Male
  Weight: 100 kg

DRUGS (21)
  1. E7389 (BOLD) [Suspect]
     Indication: NON-SMALL CELL LUNG CANCER
     Route: 041
     Dates: start: 20101013, end: 20101123
  2. TAMSULOSIN HCL [Concomitant]
     Route: 048
     Dates: start: 20100920
  3. MS CONTIN [Concomitant]
     Indication: CHEST PAIN
     Route: 048
     Dates: start: 20101005
  4. COMPAZINE [Concomitant]
     Indication: NAUSEA
     Route: 048
     Dates: start: 20091222
  5. PROAIR HFA [Concomitant]
     Route: 048
     Dates: start: 20091109
  6. COMPAZINE [Concomitant]
     Indication: VOMITING
  7. CLINDAMYCIN [Concomitant]
     Indication: RASH
     Route: 061
     Dates: start: 20101117
  8. SERTRALINE [Concomitant]
     Indication: DEPRESSION
     Route: 048
     Dates: start: 20090601
  9. FUROSEMIDE [Concomitant]
     Route: 048
     Dates: start: 20091001
  10. ELAVIL [Concomitant]
     Indication: DEPRESSION
     Route: 048
     Dates: start: 20070601
  11. DOXYCYCLINE [Concomitant]
     Indication: VOMITING
  12. MEDROL [Concomitant]
     Indication: RASH
     Route: 048
     Dates: start: 20101117
  13. POTASSIUM [Concomitant]
     Route: 048
     Dates: start: 20100923
  14. DOXYCYCLINE [Concomitant]
     Indication: RASH
     Route: 048
     Dates: start: 20101020
  15. LOTRISONE [Concomitant]
     Indication: RASH
     Route: 061
     Dates: start: 20101117
  16. ERLOTINIB HYDROCHLORIDE [Suspect]
     Indication: NON-SMALL CELL LUNG CANCER
     Route: 048
     Dates: start: 20101014, end: 20101123
  17. SPIRIVA [Concomitant]
     Route: 048
     Dates: start: 20090109
  18. MILK OF MAGNESIA TAB [Concomitant]
     Indication: VOMITING
  19. LEVAQUIN [Concomitant]
     Indication: PROPHYLAXIS
     Route: 048
     Dates: start: 20101111
  20. ROBAXIN [Concomitant]
     Route: 048
     Dates: start: 20060601
  21. MILK OF MAGNESIA TAB [Concomitant]
     Indication: CONSTIPATION
     Route: 048
     Dates: start: 20091109

REACTIONS (2)
  - ACUTE RESPIRATORY FAILURE [None]
  - PNEUMONIA [None]
